FAERS Safety Report 9722072 (Version 1)
Quarter: 2013Q4

REPORT INFORMATION
  Report Type: Spontaneous
  Country: US (occurrence: US)
  Receive Date: 20131202
  Receipt Date: 20131202
  Transmission Date: 20140711
  Serious: No
  Sender: FDA-Public Use
  Company Number: US-BIOGENIDEC-2013BI098433

PATIENT
  Age: 48 Year
  Sex: Female

DRUGS (11)
  1. TECFIDERA [Suspect]
     Indication: MULTIPLE SCLEROSIS
     Route: 048
     Dates: start: 20130925
  2. AMLODIPINE BESYLATE [Concomitant]
  3. CALCIUM CARBONATE 500 [Concomitant]
  4. CO Q-10 [Concomitant]
  5. ECOTRIN [Concomitant]
  6. GABAPENTIN [Concomitant]
  7. HYDROCODONE-ACETAMINOP [Concomitant]
  8. LISINOPRIL [Concomitant]
  9. SIMVASTATIN [Concomitant]
  10. TIZANIDINE HCL [Concomitant]
  11. VITAMIN D 1000 [Concomitant]

REACTIONS (2)
  - Flushing [Not Recovered/Not Resolved]
  - Rash [Not Recovered/Not Resolved]
